FAERS Safety Report 14614334 (Version 1)
Quarter: 2018Q1

REPORT INFORMATION
  Report Type: Spontaneous
  Country: BR (occurrence: BR)
  Receive Date: 20180308
  Receipt Date: 20180308
  Transmission Date: 20180509
  Serious: Yes (Hospitalization)
  Sender: FDA-Public Use
  Company Number: BR-PURDUE-GBR-2018-0053912

PATIENT
  Sex: Male

DRUGS (5)
  1. OXYCONTIN [Suspect]
     Active Substance: OXYCODONE HYDROCHLORIDE
     Indication: CANCER PAIN
     Dosage: UNK, [10 MG STRENGTH] ALSO IN SOME INTERVALS
     Route: 048
  2. OXYCONTIN [Suspect]
     Active Substance: OXYCODONE HYDROCHLORIDE
     Dosage: UNK, [10 MG STRENGTH]
     Route: 048
  3. DIPYRONE [Concomitant]
     Active Substance: DIPYRONE
  4. MORPHINE [Concomitant]
     Active Substance: MORPHINE
  5. OXYCONTIN [Suspect]
     Active Substance: OXYCODONE HYDROCHLORIDE
     Dosage: UNK, [20 MG STRENGTH]
     Route: 048

REACTIONS (4)
  - Bone pain [Unknown]
  - Functional gastrointestinal disorder [Unknown]
  - Renal failure [Unknown]
  - Drug effect decreased [Unknown]

NARRATIVE: CASE EVENT DATE: 20180208
